FAERS Safety Report 8344102-6 (Version None)
Quarter: 2012Q2

REPORT INFORMATION
  Report Type: 
  Country: None (occurrence: None)
  Receive Date: 20120508
  Receipt Date: 20110607
  Transmission Date: 20120825
  Serious: Yes (Other)
  Sender: FDA-Public Use
  Company Number: US-BAYER-201037339NA

PATIENT
  Age: 20 Year
  Sex: Female
  Weight: 81.633 kg

DRUGS (9)
  1. PHENERGAN [Concomitant]
     Indication: ABDOMINAL PAIN
  2. KAPIDEX [Concomitant]
  3. COLACE [Concomitant]
     Dosage: UNK UNK, BID
  4. VITAMIN B-12 [Concomitant]
  5. METAMUCIL-2 [Concomitant]
     Dosage: UNK UNK, HS
  6. METFORMIN [Concomitant]
     Dosage: 500 MG, TID
  7. DROSPIRENONE AND ETHINYL ESTRADIOL [Suspect]
     Indication: CONTRACEPTION
     Route: 048
     Dates: start: 20031201, end: 20091001
  8. YASMIN [Suspect]
     Indication: CONTRACEPTION
     Route: 048
     Dates: start: 20031201, end: 20091001
  9. RANITIDINE [Concomitant]
     Dosage: 150 MG, BID

REACTIONS (3)
  - CHOLECYSTITIS [None]
  - GALLBLADDER DISORDER [None]
  - ABDOMINAL PAIN UPPER [None]
